FAERS Safety Report 19426922 (Version 1)
Quarter: 2021Q2

REPORT INFORMATION
  Report Type: Spontaneous
  Country: US (occurrence: US)
  Receive Date: 20210617
  Receipt Date: 20210617
  Transmission Date: 20210717
  Serious: No
  Sender: FDA-Public Use
  Company Number: US-GLAXOSMITHKLINE-USCH2021037950

PATIENT

DRUGS (2)
  1. VOLTAREN ARTHRITIS PAIN [Suspect]
     Active Substance: DICLOFENAC SODIUM
     Indication: ARTHRITIS
  2. CBD OIL [Suspect]
     Active Substance: CANNABIDIOL\HERBALS
     Indication: PRODUCT USED FOR UNKNOWN INDICATION

REACTIONS (1)
  - Taste disorder [Unknown]
